FAERS Safety Report 18275782 (Version 2)
Quarter: 2020Q4

REPORT INFORMATION
  Report Type: Report from Study
  Country: US (occurrence: US)
  Receive Date: 20200917
  Receipt Date: 20201020
  Transmission Date: 20210113
  Serious: Yes (Hospitalization, Other)
  Sender: FDA-Public Use
  Company Number: US-ACADIA PHARMACEUTICALS INC.-ACA-2020-PIM-002936

PATIENT
  Age: 74 Year
  Sex: Female
  Weight: 41 kg

DRUGS (15)
  1. DULOXETINE. [Concomitant]
     Active Substance: DULOXETINE
     Dosage: 20 MILLIGRAM, BID
     Route: 048
     Dates: start: 20190826
  2. QUETIAPINE. [Concomitant]
     Active Substance: QUETIAPINE
     Indication: PSYCHOTIC DISORDER
     Dosage: 25 MILLIGRAM QHS
     Route: 048
     Dates: start: 20180816
  3. XANAX [Concomitant]
     Active Substance: ALPRAZOLAM
     Indication: ANXIETY
     Dosage: 1 MILLIGRAM, QD PRN
     Dates: start: 20180530
  4. LEXAPRO [Concomitant]
     Active Substance: ESCITALOPRAM OXALATE
     Indication: ANXIETY
     Dosage: 10 MILLIGRAM, QD
     Route: 048
     Dates: start: 20190918
  5. VITAMIN C [Concomitant]
     Active Substance: ASCORBIC ACID
     Indication: PRODUCT USED FOR UNKNOWN INDICATION
     Dosage: 500 MILLIGRAM, QD
     Route: 048
     Dates: start: 20181116
  6. VITAMIN B12 [VITAMIN B12 NOS] [Concomitant]
     Active Substance: CYANOCOBALAMIN
     Indication: PRODUCT USED FOR UNKNOWN INDICATION
     Dosage: UNK QD
     Dates: start: 20181114
  7. ROPINIROLE. [Concomitant]
     Active Substance: ROPINIROLE
     Indication: PARKINSON^S DISEASE
     Dosage: 12 MG QD
     Route: 048
     Dates: start: 20190211
  8. ROPINIROLE. [Concomitant]
     Active Substance: ROPINIROLE
     Dosage: 2 MG QD
     Route: 048
     Dates: start: 20190521
  9. RYTARY [Concomitant]
     Active Substance: CARBIDOPA\LEVODOPA
     Indication: PARKINSON^S DISEASE
     Dosage: 48.75/195 MG 2X5 QD
     Route: 048
     Dates: start: 20190604
  10. DULOXETINE. [Concomitant]
     Active Substance: DULOXETINE
     Indication: ANXIETY
     Dosage: 20 MILLIGRAM, QD
     Route: 048
     Dates: start: 20190326
  11. CRESTOR [Concomitant]
     Active Substance: ROSUVASTATIN CALCIUM
     Indication: PRODUCT USED FOR UNKNOWN INDICATION
     Dosage: 10 MILLIGRAM, QD
     Route: 048
     Dates: start: 20160419
  12. NUPLAZID [Suspect]
     Active Substance: PIMAVANSERIN TARTRATE
     Indication: PARKINSON^S DISEASE PSYCHOSIS
     Dosage: 34 MILLIGRAM, QD
     Dates: start: 20180821
  13. ROPINIROLE. [Concomitant]
     Active Substance: ROPINIROLE
     Dosage: 8 MILLIGRAM QHS
     Route: 048
     Dates: start: 20190604
  14. SINEMET [Concomitant]
     Active Substance: CARBIDOPA\LEVODOPA
     Indication: PARKINSON^S DISEASE
     Dosage: 25/100 MG QHS
     Route: 048
     Dates: start: 20190829
  15. ACYCLOVIR [ACICLOVIR] [Concomitant]
     Active Substance: ACYCLOVIR
     Indication: ANTIVIRAL TREATMENT
     Dosage: 400 MG QD
     Route: 048
     Dates: start: 20150915

REACTIONS (2)
  - Femur fracture [Recovered/Resolved]
  - Fall [Recovered/Resolved]

NARRATIVE: CASE EVENT DATE: 20191206
